FAERS Safety Report 6702986-9 (Version None)
Quarter: 2010Q2

REPORT INFORMATION
  Report Type: 
  Country: None (occurrence: None)
  Receive Date: 20100429
  Receipt Date: 20100429
  Transmission Date: 20101027
  Serious: Yes (Hospitalization)
  Sender: FDA-Public Use
  Company Number: None

PATIENT
  Sex: Male
  Weight: 67.586 kg

DRUGS (12)
  1. BENDAMUSTINE 100MG/VIAL, CEPHALON [Suspect]
     Indication: SMALL CELL LUNG CANCER STAGE UNSPECIFIED
     Dosage: 120 MG/M2, IV D1, 2 Q 21
     Route: 042
     Dates: start: 20100419
  2. MS CONTIN [Concomitant]
  3. ZOLPIDEM [Concomitant]
  4. ROZEREM [Concomitant]
  5. SERTRALINE HCL [Concomitant]
  6. ALOXI [Concomitant]
  7. BENADRYL [Concomitant]
  8. TYLENOL-500 [Concomitant]
  9. DECADRON [Concomitant]
  10. EMEND [Concomitant]
  11. OXYCODONE HCL AND ACETAMINOPHEN [Concomitant]
  12. .. [Concomitant]

REACTIONS (2)
  - CHILLS [None]
  - PYREXIA [None]
